FAERS Safety Report 12759936 (Version 1)
Quarter: 2016Q3

REPORT INFORMATION
  Report Type: Spontaneous
  Country: TR (occurrence: TR)
  Receive Date: 20160919
  Receipt Date: 20160919
  Transmission Date: 20161109
  Serious: Yes (Hospitalization)
  Sender: FDA-Public Use
  Company Number: TR-CHARTWELL LIFE SCIENCE LLC-2016CHA00035

PATIENT
  Age: 22 Year
  Sex: Female

DRUGS (1)
  1. DOXYCYCLINE. [Suspect]
     Active Substance: DOXYCYCLINE
     Indication: ACNE
     Dosage: 100 MG, 1X/DAY
     Route: 048

REACTIONS (3)
  - Gastrointestinal ulcer [Recovered/Resolved]
  - Pancreatitis [Recovered/Resolved]
  - Dysphagia [Recovered/Resolved]
